FAERS Safety Report 22146124 (Version 1)
Quarter: 2023Q1

REPORT INFORMATION
  Report Type: Report from Study
  Country: EE (occurrence: EE)
  Receive Date: 20230328
  Receipt Date: 20230328
  Transmission Date: 20230417
  Serious: Yes (Death, Hospitalization)
  Sender: FDA-Public Use
  Company Number: EE-ABBVIE-4704103

PATIENT
  Age: 82 Year
  Sex: Male

DRUGS (2)
  1. CARBIDOPA\LEVODOPA [Suspect]
     Active Substance: CARBIDOPA\LEVODOPA
     Indication: Parkinson^s disease
     Dosage: MORN. 14ML; CONT.3,2 ML/H; EXTRA 2,0 ML, CONTINUOUS
     Route: 050
     Dates: start: 20190620, end: 20230322
  2. CARBIDOPA\LEVODOPA [Suspect]
     Active Substance: CARBIDOPA\LEVODOPA

REACTIONS (4)
  - Myocardial ischaemia [Fatal]
  - Osteomyelitis [Not Recovered/Not Resolved]
  - Urinary tract infection [Not Recovered/Not Resolved]
  - Hospitalisation [Fatal]

NARRATIVE: CASE EVENT DATE: 20230220
